FAERS Safety Report 12068982 (Version 5)
Quarter: 2018Q2

REPORT INFORMATION
  Report Type: Report from Study
  Country: DE (occurrence: DE)
  Receive Date: 20160211
  Receipt Date: 20180403
  Transmission Date: 20180711
  Serious: Yes (Hospitalization)
  Sender: FDA-Public Use
  Company Number: DE-ROCHE-1708042

PATIENT
  Age: 0 Year
  Sex: Female
  Weight: 68.7 kg

DRUGS (33)
  1. BENDAMUSTINE [Suspect]
     Active Substance: BENDAMUSTINE
     Indication: CHRONIC LYMPHOCYTIC LEUKAEMIA
     Dosage: ON 16/OCT/2015, SHE RECEIVED HER FINAL DOSE OF BENDAMUSTINE.
     Route: 042
     Dates: start: 20151015, end: 20151104
  2. NEULASTA [Concomitant]
     Active Substance: PEGFILGRASTIM
     Route: 058
     Dates: start: 20151107, end: 20151107
  3. KALIUM VERLA [Concomitant]
     Active Substance: POTASSIUM CITRATE
     Dosage: UNITS:MVAL
     Route: 048
     Dates: start: 20151229, end: 20160101
  4. RANITIDIN [Concomitant]
     Active Substance: RANITIDINE HYDROCHLORIDE
     Route: 042
     Dates: start: 20151105, end: 20151105
  5. SOLU DECORTIN [Concomitant]
     Active Substance: PREDNISOLONE SODIUM SUCCINATE
     Route: 042
     Dates: start: 20151105, end: 20151106
  6. LENOGRASTIM [Concomitant]
     Active Substance: LENOGRASTIM
  7. RITUXIMAB. [Suspect]
     Active Substance: RITUXIMAB
     Indication: PRODUCT USED FOR UNKNOWN INDICATION
     Route: 065
     Dates: start: 20160324
  8. VINCRISTINE [Suspect]
     Active Substance: VINCRISTINE
     Indication: PRODUCT USED FOR UNKNOWN INDICATION
     Route: 065
     Dates: start: 20160324
  9. NEULASTA [Concomitant]
     Active Substance: PEGFILGRASTIM
     Route: 058
     Dates: start: 20151230, end: 20151230
  10. PREDNISOLONE. [Suspect]
     Active Substance: PREDNISOLONE
     Indication: PRODUCT USED FOR UNKNOWN INDICATION
     Route: 065
     Dates: start: 20160324
  11. ZOLEDRONIC ACID [Concomitant]
     Active Substance: ZOLEDRONIC ACID
     Route: 042
     Dates: start: 20160203, end: 20160203
  12. NEULASTA [Concomitant]
     Active Substance: PEGFILGRASTIM
     Route: 058
     Dates: start: 20160503, end: 20160503
  13. CIPROFLOXACIN. [Concomitant]
     Active Substance: CIPROFLOXACIN
     Route: 048
     Dates: start: 20151107
  14. FENISTIL (GERMANY) [Concomitant]
     Route: 042
     Dates: start: 20151105, end: 20151106
  15. VENETOCLAX. [Suspect]
     Active Substance: VENETOCLAX
     Indication: CHRONIC LYMPHOCYTIC LEUKAEMIA
     Dosage: ON 02/FEB/2016, SHE RECEIVED HER MOST RECENT DOSE OF VENETOCLAX PRIOR TO ONSET OF THE EVENT.
     Route: 048
     Dates: start: 20151130, end: 20160307
  16. VENETOCLAX. [Suspect]
     Active Substance: VENETOCLAX
     Route: 048
     Dates: start: 20160124, end: 20160124
  17. LENOGRASTIM [Concomitant]
     Active Substance: LENOGRASTIM
     Dosage: TOTAL DAILY DOSE: 34 [ILLEGIBLE].
     Route: 058
     Dates: start: 20160124, end: 20160202
  18. IRON (II) GLYCINE SULFATE [Concomitant]
     Route: 065
     Dates: start: 201207
  19. NEULASTA [Concomitant]
     Active Substance: PEGFILGRASTIM
     Route: 058
     Dates: start: 20160418, end: 20160418
  20. FENISTIL (GERMANY) [Concomitant]
     Route: 042
     Dates: start: 20160202, end: 20160202
  21. VENETOCLAX. [Suspect]
     Active Substance: VENETOCLAX
     Dosage: STARTING DOSE: 20 MG, CONTINUOUSLY STARTING IN CYCLE 2 WITH A LOW DOSE ESCALATION TO 50 MG?LAST DOSE
     Route: 048
     Dates: start: 20151129, end: 20151229
  22. CYCLOPHOSPHAMIDE. [Suspect]
     Active Substance: CYCLOPHOSPHAMIDE
     Indication: PRODUCT USED FOR UNKNOWN INDICATION
     Route: 065
     Dates: start: 20160324
  23. PARACETAMOL [Concomitant]
     Active Substance: ACETAMINOPHEN
     Route: 048
     Dates: start: 20151105, end: 20151106
  24. FERRO SANOL [Concomitant]
     Active Substance: FERROUS GLYCINE SULFATE
     Route: 048
     Dates: start: 201207
  25. EUTHYROX [Concomitant]
     Active Substance: LEVOTHYROXINE SODIUM
     Route: 048
     Dates: start: 200507
  26. PIPERACILLIN/TAZOBACTAM [Concomitant]
     Active Substance: PIPERACILLIN SODIUM\TAZOBACTAM SODIUM
     Route: 042
     Dates: start: 20160125, end: 20160201
  27. OBINUTUZUMAB. [Suspect]
     Active Substance: OBINUTUZUMAB
     Indication: CHRONIC LYMPHOCYTIC LEUKAEMIA
     Dosage: ON 02/FEB/2016, SHE RECEIVED HER MOST RECENT DOSE OF OBINUTUZUMAB PRIOR TO ONSET OF THE EVENT.?LAST
     Route: 042
     Dates: start: 20151105, end: 20160301
  28. DOXORUBICIN [Suspect]
     Active Substance: DOXORUBICIN
     Indication: PRODUCT USED FOR UNKNOWN INDICATION
     Route: 065
     Dates: start: 20160324
  29. ALLOPURINOL. [Concomitant]
     Active Substance: ALLOPURINOL
     Route: 048
     Dates: start: 20151105
  30. NEULASTA [Concomitant]
     Active Substance: PEGFILGRASTIM
     Route: 058
     Dates: start: 20160215, end: 20160216
  31. LEVOTHYROXINE. [Concomitant]
     Active Substance: LEVOTHYROXINE
     Route: 048
     Dates: start: 200507
  32. PANTOPRAZOLE [Concomitant]
     Active Substance: PANTOPRAZOLE
     Route: 065
     Dates: start: 201207
  33. PIPERACILLIN/TAZOBACTAM [Concomitant]
     Active Substance: PIPERACILLIN SODIUM\TAZOBACTAM SODIUM
     Indication: FEBRILE NEUTROPENIA
     Route: 042
     Dates: start: 20160217, end: 20160224

REACTIONS (7)
  - Osteoporosis [Not Recovered/Not Resolved]
  - Febrile neutropenia [Recovered/Resolved]
  - Thrombocytopenia [Recovered/Resolved]
  - Neutropenia [Not Recovered/Not Resolved]
  - Panic attack [Recovered/Resolved]
  - Febrile neutropenia [Recovered/Resolved]
  - Febrile bone marrow aplasia [Recovered/Resolved]

NARRATIVE: CASE EVENT DATE: 20151201
